FAERS Safety Report 5032381-2 (Version None)
Quarter: 2006Q2

REPORT INFORMATION
  Report Type: 
  Country: None (occurrence: None)
  Receive Date: 20060508
  Receipt Date: 20050420
  Transmission Date: 20061013
  Serious: Yes (Hospitalization)
  Sender: FDA-Public Use
  Company Number: 231531K05USA

PATIENT
  Age: 44 Year
  Sex: Male

DRUGS (2)
  1. REBIF [Suspect]
     Indication: MULTIPLE SCLEROSIS
     Dosage: 44 MCG, 3 IN 1 WEEKS, SUBCUTANEOUS
     Route: 058
     Dates: start: 20030224
  2. BBE VENOM (BEE VENOM, STANDARD) [Suspect]

REACTIONS (10)
  - ACCIDENT [None]
  - ASTHENIA [None]
  - DYSPHAGIA [None]
  - HYPERSENSITIVITY [None]
  - INTERVERTEBRAL DISC DISORDER [None]
  - MOVEMENT DISORDER [None]
  - MUSCULAR WEAKNESS [None]
  - MYDRIASIS [None]
  - OEDEMA PERIPHERAL [None]
  - PUPIL FIXED [None]
